FAERS Safety Report 6355687-3 (Version None)
Quarter: 2009Q3

REPORT INFORMATION
  Report Type: 
  Country: None (occurrence: None)
  Receive Date: 20090910
  Receipt Date: 20090902
  Transmission Date: 20100115
  Serious: Yes (Hospitalization)
  Sender: FDA-Public Use
  Company Number: 2009AL005785

PATIENT
  Age: 44 Year
  Sex: Male

DRUGS (5)
  1. VENLAFAXINE HYDROCHLORIDE TABLETS, 100MG (ATLLC) [Suspect]
     Indication: DEPRESSION
     Dosage: 75 MG;QD;PO
     Route: 048
     Dates: end: 20090517
  2. OLANZAPINE [Concomitant]
  3. EPILIM [Concomitant]
  4. OMEPRAZOLE [Concomitant]
  5. ALBUTEROL [Concomitant]

REACTIONS (3)
  - ALCOHOLIC LIVER DISEASE [None]
  - BLOOD SODIUM DECREASED [None]
  - CHOLESTASIS [None]
